FAERS Safety Report 7513956-5 (Version None)
Quarter: 2011Q2

REPORT INFORMATION
  Report Type: 
  Country: None (occurrence: None)
  Receive Date: 20110531
  Receipt Date: 20110524
  Transmission Date: 20111010
  Serious: Yes (Death)
  Sender: FDA-Public Use
  Company Number: GB-GENZYME-CLOF-1001618

PATIENT
  Sex: Female

DRUGS (8)
  1. EVOLTRA [Suspect]
     Dosage: 2ND COURSE
     Route: 065
     Dates: start: 20110217, end: 20110401
  2. CYTARABINE [Suspect]
     Indication: ACUTE MYELOID LEUKAEMIA
     Dosage: UNK
     Route: 065
  3. EVOLTRA [Suspect]
     Indication: ACUTE MYELOID LEUKAEMIA
     Dosage: 1ST COURSE
     Route: 065
     Dates: start: 20110217, end: 20110401
  4. NEUPOGEN [Suspect]
     Indication: ACUTE MYELOID LEUKAEMIA
     Dosage: UNK
     Route: 065
  5. IDARUBICIN HCL [Suspect]
     Indication: ACUTE MYELOID LEUKAEMIA
     Dosage: UNK
     Route: 065
  6. FLUDARA [Suspect]
     Indication: ACUTE MYELOID LEUKAEMIA
     Dosage: UNK
     Route: 065
  7. DAUNORUBICIN HCL [Suspect]
     Dosage: 2ND COURSE
     Route: 065
     Dates: start: 20110217, end: 20110401
  8. DAUNORUBICIN HCL [Suspect]
     Indication: ACUTE MYELOID LEUKAEMIA
     Dosage: 1ST COURSE
     Route: 065
     Dates: start: 20110217, end: 20110401

REACTIONS (1)
  - ACUTE MYELOID LEUKAEMIA RECURRENT [None]
